FAERS Safety Report 10287457 (Version 1)
Quarter: 2014Q3

REPORT INFORMATION
  Report Type: Spontaneous
  Country: CA (occurrence: CA)
  Receive Date: 20140709
  Receipt Date: 20140709
  Transmission Date: 20150326
  Serious: Yes (Other)
  Sender: FDA-Public Use
  Company Number: CA-GLAXOSMITHKLINE-A1080087A

PATIENT
  Sex: Female

DRUGS (1)
  1. TAFINLAR [Suspect]
     Active Substance: DABRAFENIB MESYLATE
     Indication: METASTATIC MALIGNANT MELANOMA
     Dosage: 300MG PER DAY
     Route: 065

REACTIONS (10)
  - Pruritus [Unknown]
  - Malignant melanoma [Unknown]
  - Influenza like illness [Unknown]
  - Performance status decreased [Unknown]
  - Headache [Unknown]
  - Photosensitivity reaction [Unknown]
  - Exophthalmos [Unknown]
  - Rash [Unknown]
  - Fatigue [Unknown]
  - Erythema [Unknown]
